FAERS Safety Report 6149124-1 (Version None)
Quarter: 2009Q2

REPORT INFORMATION
  Report Type: 
  Country: None (occurrence: None)
  Receive Date: 20090407
  Receipt Date: 20090403
  Transmission Date: 20091009
  Serious: Yes (Hospitalization)
  Sender: FDA-Public Use
  Company Number: SP02325

PATIENT
  Age: 32 Year
  Sex: Female

DRUGS (2)
  1. VISICOL [Suspect]
     Indication: COLONOSCOPY
     Dosage: ORAL
     Route: 048
     Dates: start: 20090303
  2. MESALAZINE [Concomitant]

REACTIONS (2)
  - BLOOD CALCIUM DECREASED [None]
  - HYPOAESTHESIA [None]
